FAERS Safety Report 6372046-8 (Version None)
Quarter: 2009Q3

REPORT INFORMATION
  Report Type: 
  Country: None (occurrence: None)
  Receive Date: 20090923
  Receipt Date: 20090917
  Transmission Date: 20100115
  Serious: Yes (Other)
  Sender: FDA-Public Use
  Company Number: US-MERCK-0901USA01686

PATIENT
  Age: 75 Year
  Sex: Female

DRUGS (1)
  1. FOSAMAX [Suspect]
     Indication: OSTEOPOROSIS
     Route: 048
     Dates: start: 20010201, end: 20060601

REACTIONS (12)
  - ABDOMINAL DISCOMFORT [None]
  - DECREASED APPETITE [None]
  - DENTAL CARIES [None]
  - LERICHE SYNDROME [None]
  - ORAL INFECTION [None]
  - OSTEONECROSIS [None]
  - PAIN IN JAW [None]
  - RASH [None]
  - RESORPTION BONE INCREASED [None]
  - SWELLING [None]
  - TOOTH ABSCESS [None]
  - TOOTH DISORDER [None]
